FAERS Safety Report 7700806-7 (Version None)
Quarter: 2011Q3

REPORT INFORMATION
  Report Type: 
  Country: None (occurrence: None)
  Receive Date: 20110822
  Receipt Date: 20110810
  Transmission Date: 20111222
  Serious: Yes (Other)
  Sender: FDA-Public Use
  Company Number: DE-ROCHE-793240

PATIENT
  Sex: Female

DRUGS (4)
  1. CORTISONE ACETATE [Concomitant]
  2. ANTIHISTAMINE [Concomitant]
  3. VALCYTE [Suspect]
     Indication: CYTOMEGALOVIRUS INFECTION
     Route: 048
     Dates: start: 20110715, end: 20110715
  4. ACYCLOVIR [Concomitant]
     Dates: start: 20110201

REACTIONS (2)
  - DYSPNOEA [None]
  - SWOLLEN TONGUE [None]
